FAERS Safety Report 9039111 (Version 1)
Quarter: 2013Q1

REPORT INFORMATION
  Report Type: Spontaneous
  Country: US (occurrence: None)
  Receive Date: 20130123
  Receipt Date: 20130123
  Transmission Date: 20140127
  Serious: Yes (Hospitalization)
  Sender: FDA-Public Use
  Company Number: None

PATIENT
  Age: 65 Year
  Sex: Male
  Weight: 134.5 kg

DRUGS (1)
  1. DORZOLAMIDE/TIMOLOL [Suspect]
     Indication: GLAUCOMA
     Route: 047
     Dates: start: 20090909, end: 20130119

REACTIONS (3)
  - Syncope [None]
  - Atrioventricular block [None]
  - Palpitations [None]
